FAERS Safety Report 15550552 (Version 1)
Quarter: 2018Q4

REPORT INFORMATION
  Report Type: Spontaneous
  Country: US (occurrence: US)
  Receive Date: 20181019
  Receipt Date: 20181019
  Transmission Date: 20190205
  Serious: No
  Sender: FDA-Public Use
  Company Number: None

PATIENT
  Age: 54 Year
  Sex: Female

DRUGS (1)
  1. MAVYRET [Suspect]
     Active Substance: GLECAPREVIR\PIBRENTASVIR
     Dates: start: 20180920

REACTIONS (6)
  - Headache [None]
  - Hepatic pain [None]
  - Pulmonary congestion [None]
  - Ocular discomfort [None]
  - Myalgia [None]
  - Cough [None]

NARRATIVE: CASE EVENT DATE: 20180920
